FAERS Safety Report 8355222-4 (Version None)
Quarter: 2012Q2

REPORT INFORMATION
  Report Type: 
  Country: None (occurrence: None)
  Receive Date: 20120511
  Receipt Date: 20120430
  Transmission Date: 20120825
  Serious: Yes (Hospitalization, Other)
  Sender: FDA-Public Use
  Company Number: US-ELI_LILLY_AND_COMPANY-US201112000718

PATIENT
  Sex: Female
  Weight: 103.4 kg

DRUGS (35)
  1. DILTIAZEM [Concomitant]
     Dosage: 240 MG, UNK
  2. PROTONIX [Concomitant]
     Dosage: 40 MG, QD
  3. TRAZODONE HCL [Concomitant]
  4. IBUPROFEN (ADVIL) [Concomitant]
     Dosage: UNK
  5. LIDODERM [Concomitant]
     Indication: CHEST PAIN
     Dosage: UNK, BID
  6. ASPIRIN [Concomitant]
     Dosage: 81 MG, UNK
  7. VENTOLIN HFA [Concomitant]
     Indication: ASTHMA
  8. EFFEXOR XR [Concomitant]
  9. ZOLOFT [Concomitant]
  10. NIASPAN [Concomitant]
     Dosage: 500 MG, QD
  11. LANTUS [Concomitant]
     Dosage: 10 IU, UNK
  12. TANDEM PLUS [Concomitant]
     Dosage: UNK UNK, QD
  13. FORTEO [Suspect]
     Dosage: 20 UG, QD
  14. FORTEO [Suspect]
     Dosage: 20 UG, QD
     Route: 065
  15. FORTEO [Suspect]
     Dosage: 20 UG, QD
  16. FLEXERIL [Concomitant]
     Dosage: 10 MG, TID
  17. ADVAIR DISKUS 100/50 [Concomitant]
     Dosage: 50 UG, UNK
  18. TRAZODONE HCL [Concomitant]
     Dosage: 150 MG, QD
  19. FORTEO [Suspect]
     Indication: OSTEOPOROSIS
     Dosage: 20 UG,QD
     Dates: start: 20111007
  20. XYZAL [Concomitant]
  21. HYDROCODONE BITARTRATE [Concomitant]
     Dosage: UNK, TID
  22. VITAMIN D [Concomitant]
  23. OXYGEN [Concomitant]
     Dosage: 2 L, QD
  24. CARAFATE [Concomitant]
     Indication: GASTROOESOPHAGEAL REFLUX DISEASE
     Dosage: 10 ML, EVERY 6 HRS
  25. DIOVAN [Concomitant]
     Dosage: 160 MG, QD
  26. LEVOTHYROXINE SODIUM [Concomitant]
     Dosage: 50 UG, QD
  27. GABAPENTIN [Concomitant]
     Dosage: 300 MG, TID
  28. CALCIUM 600 PLUS VITAMIN D [Concomitant]
  29. LORAZEPAM [Concomitant]
     Dosage: 0.05 MG, TID
  30. ALBUTEROL [Concomitant]
     Dosage: UNK, EVERY 6 HRS
  31. FORTEO [Suspect]
     Dosage: 20 UG, QD
  32. CRESTOR [Concomitant]
     Dosage: 40 MG, QD
  33. SINGULAIR [Concomitant]
     Dosage: 10 MG, UNK
  34. VENLAFAXINE [Concomitant]
     Dosage: 75 MG, BID
  35. LEVOCETIRIZINE DIHYDROCHLORIDE [Concomitant]
     Dosage: 5 MG, QD

REACTIONS (30)
  - BACK DISORDER [None]
  - CATARACT [None]
  - GASTROENTERITIS VIRAL [None]
  - MOBILITY DECREASED [None]
  - NECK PAIN [None]
  - OROPHARYNGEAL PAIN [None]
  - OEDEMA PERIPHERAL [None]
  - MALAISE [None]
  - CONSTIPATION [None]
  - MAMMOPLASTY [None]
  - BLOOD MAGNESIUM DECREASED [None]
  - DEVICE OCCLUSION [None]
  - SURGERY [None]
  - DRY THROAT [None]
  - OSTEONECROSIS [None]
  - BACK PAIN [None]
  - DIARRHOEA [None]
  - DEHYDRATION [None]
  - GAIT DISTURBANCE [None]
  - DRUG DOSE OMISSION [None]
  - CHOKING [None]
  - OESOPHAGEAL STENOSIS [None]
  - HYPERSENSITIVITY [None]
  - CHEST PAIN [None]
  - BLOOD POTASSIUM DECREASED [None]
  - CHRONIC OBSTRUCTIVE PULMONARY DISEASE [None]
  - RASH [None]
  - ARTHRALGIA [None]
  - VOMITING [None]
  - ARTHROPATHY [None]
